FAERS Safety Report 4919992-7 (Version None)
Quarter: 2006Q1

REPORT INFORMATION
  Report Type: 
  Country: None (occurrence: None)
  Receive Date: 20060216
  Receipt Date: 20060127
  Transmission Date: 20060701
  Serious: Yes (Hospitalization)
  Sender: FDA-Public Use
  Company Number: FR_050806988

PATIENT
  Age: 81 Year
  Sex: Female

DRUGS (10)
  1. PROZAC [Suspect]
     Indication: DYSTHYMIC DISORDER
     Dosage: 20 MG, DAILY (1/D), ORAL
     Route: 048
     Dates: end: 20041016
  2. TEMESTA (LORAZEPAM) [Concomitant]
  3. TRAMADOL HCL [Concomitant]
  4. FUROSEMIDE [Concomitant]
  5. OMEPRAZOLE [Concomitant]
  6. POTASSIUM CHLORIDE [Concomitant]
  7. DISCOTRIN (GLYCERYL TRINITRATE) [Concomitant]
  8. PREVISCAN (FLUINDIONE) [Concomitant]
  9. ALDACTONE [Concomitant]
  10. LEXOMIL (BROMAZEPAM) [Concomitant]

REACTIONS (6)
  - CEREBRAL ATROPHY [None]
  - CEREBRAL VENTRICLE DILATATION [None]
  - CONFUSIONAL STATE [None]
  - DRUG INTERACTION [None]
  - HEMIPLEGIA [None]
  - HYPONATRAEMIA [None]
